FAERS Safety Report 15669596 (Version 1)
Quarter: 2018Q4

REPORT INFORMATION
  Report Type: Spontaneous
  Country: US (occurrence: US)
  Receive Date: 20181129
  Receipt Date: 20181129
  Transmission Date: 20190205
  Serious: Yes (Life-Threatening, Hospitalization)
  Sender: FDA-Public Use
  Company Number: US-TEVA-2018-US-980526

PATIENT
  Age: 20 Year
  Sex: Female

DRUGS (1)
  1. FENTANYL TAINTED HEROIN [Suspect]
     Active Substance: FENTANYL
     Indication: DRUG ABUSE
     Route: 065

REACTIONS (2)
  - Toxicity to various agents [Recovering/Resolving]
  - Drug abuse [Unknown]
